FAERS Safety Report 8766437 (Version 1)
Quarter: 2012Q4

REPORT INFORMATION
  Report Type: 
  Country: GB (occurrence: GB)
  Receive Date: 20120904
  Receipt Date: 20120904
  Transmission Date: 20130627
  Serious: Yes (Other)
  Sender: FDA-Public Use
  Company Number: GB-ROCHE-1111690

PATIENT
  Age: 52 Year
  Sex: Female

DRUGS (1)
  1. TRASTUZUMAB [Suspect]
     Indication: BREAST CANCER
     Route: 065

REACTIONS (1)
  - Breast cancer recurrent [Unknown]
